FAERS Safety Report 18743444 (Version 1)
Quarter: 2021Q1

REPORT INFORMATION
  Report Type: Spontaneous
  Country: CA (occurrence: CA)
  Receive Date: 20210115
  Receipt Date: 20210115
  Transmission Date: 20210419
  Serious: Yes (Life-Threatening, Congenital Anomaly, Other)
  Sender: FDA-Public Use
  Company Number: CA-TEVA-2021-CA-1867333

PATIENT
  Age: 9 Year
  Sex: Male

DRUGS (23)
  1. MELPHALAN. [Suspect]
     Active Substance: MELPHALAN
     Indication: CHEMOTHERAPY
     Route: 042
  2. DEXAMETHASONE. [Concomitant]
     Active Substance: DEXAMETHASONE
     Route: 065
  3. DIPHENHYDRAMINE. [Concomitant]
     Active Substance: DIPHENHYDRAMINE
  4. FUROSEMIDE. [Concomitant]
     Active Substance: FUROSEMIDE
  5. METHYLPREDNISOLONE NOS [Concomitant]
     Active Substance: METHYLPREDNISOLONE
  6. TRIMETHOPRIM?SULFAMETHOXAZOLE [Concomitant]
     Active Substance: SULFAMETHOXAZOLE\TRIMETHOPRIM
  7. THIOTEPA. [Suspect]
     Active Substance: THIOTEPA
     Indication: CHEMOTHERAPY
     Route: 042
  8. CALCIUM CARBONATE WITH VITAMIN D [Concomitant]
     Active Substance: CALCIUM CARBONATE\ERGOCALCIFEROL
  9. HYDROMORPHONE [Concomitant]
     Active Substance: HYDROMORPHONE
  10. HYDROXYZINE [Concomitant]
     Active Substance: HYDROXYZINE HYDROCHLORIDE
  11. KETAMINE [Concomitant]
     Active Substance: KETAMINE
  12. LEVETIRACETAM. [Concomitant]
     Active Substance: LEVETIRACETAM
  13. ONDANSETRON [Concomitant]
     Active Substance: ONDANSETRON
  14. FLUDARABINE [Suspect]
     Active Substance: FLUDARABINE PHOSPHATE
     Indication: CHEMOTHERAPY
     Route: 042
  15. URSODEOXYCHOLIC ACID [Concomitant]
     Active Substance: URSODIOL
  16. TACROLIMUS. [Suspect]
     Active Substance: TACROLIMUS
     Route: 042
  17. GABAPENTIN. [Concomitant]
     Active Substance: GABAPENTIN
  18. FAMOTIDINE. [Concomitant]
     Active Substance: FAMOTIDINE
  19. OLANZAPINE. [Concomitant]
     Active Substance: OLANZAPINE
  20. AMLODIPINE [Concomitant]
     Active Substance: AMLODIPINE BESYLATE
  21. FLUCONAZOLE. [Concomitant]
     Active Substance: FLUCONAZOLE
  22. NALOXONE [Concomitant]
     Active Substance: NALOXONE
  23. NIFEDIPINE. [Concomitant]
     Active Substance: NIFEDIPINE

REACTIONS (3)
  - Febrile neutropenia [Recovered/Resolved]
  - Aplasia [Recovered/Resolved]
  - Chills [Recovered/Resolved]
